FAERS Safety Report 10424117 (Version 1)
Quarter: 2014Q3

REPORT INFORMATION
  Report Type: Spontaneous
  Country: US (occurrence: None)
  Receive Date: 20140722
  Receipt Date: 20140722
  Transmission Date: 20150326
  Serious: No
  Sender: FDA-Public Use
  Company Number: AEGR000434

PATIENT
  Age: 57 Year
  Sex: Female
  Weight: 68 kg

DRUGS (1)
  1. JUXTAPID [Suspect]
     Active Substance: LOMITAPIDE MESYLATE
     Indication: TYPE IIA HYPERLIPIDAEMIA
     Route: 048
     Dates: start: 20130910, end: 20140424

REACTIONS (6)
  - Muscle tightness [None]
  - Nausea [None]
  - Heart rate increased [None]
  - Fatigue [None]
  - Gastrooesophageal reflux disease [None]
  - Blood pressure increased [None]

NARRATIVE: CASE EVENT DATE: 20140417
